FAERS Safety Report 5870693-0 (Version None)
Quarter: 2008Q3

REPORT INFORMATION
  Report Type: 
  Country: None (occurrence: None)
  Receive Date: 20080904
  Receipt Date: 20080904
  Transmission Date: 20090109
  Serious: Yes (Other)
  Sender: FDA-Public Use
  Company Number: A0745911A

PATIENT
  Age: 40 Year
  Sex: Female

DRUGS (1)
  1. ALLI [Suspect]
     Indication: WEIGHT LOSS DIET
     Route: 048
     Dates: start: 20080101

REACTIONS (5)
  - FLATULENCE [None]
  - FREQUENT BOWEL MOVEMENTS [None]
  - RETINAL DETACHMENT [None]
  - WEIGHT INCREASED [None]
  - WEIGHT LOSS POOR [None]
